FAERS Safety Report 12249909 (Version 4)
Quarter: 2016Q2

REPORT INFORMATION
  Report Type: Report from Study
  Country: US (occurrence: US)
  Receive Date: 20160408
  Receipt Date: 20160622
  Transmission Date: 20160815
  Serious: Yes (Hospitalization)
  Sender: FDA-Public Use
  Company Number: US-TARO-2016TAR00300

PATIENT
  Age: 19 Year
  Sex: Female
  Weight: 98.41 kg

DRUGS (2)
  1. ACZONE [Suspect]
     Active Substance: DAPSONE
     Indication: ACNE
     Dosage: 1 APPLICATION, 2X/DAY
     Route: 061
     Dates: start: 20160201, end: 20160425
  2. SPERMICIDE [Concomitant]
     Indication: CONTRACEPTION
     Dosage: 1 APPLICATION
     Route: 067
     Dates: start: 20160201

REACTIONS (5)
  - Loss of consciousness [Recovered/Resolved]
  - Neck pain [Recovered/Resolved]
  - Scratch [None]
  - Lip injury [None]
  - Back pain [Recovered/Resolved]

NARRATIVE: CASE EVENT DATE: 20160318
